FAERS Safety Report 12501438 (Version 1)
Quarter: 2016Q2

REPORT INFORMATION
  Report Type: Spontaneous
  Country: US (occurrence: US)
  Receive Date: 20160627
  Receipt Date: 20160627
  Transmission Date: 20160815
  Serious: Yes (Other)
  Sender: FDA-Public Use
  Company Number: US-BAYER-2016-124753

PATIENT
  Age: 33 Year
  Sex: Male

DRUGS (2)
  1. ALEVE [Suspect]
     Active Substance: NAPROXEN SODIUM
     Indication: ANALGESIC THERAPY
     Dosage: 4 DF, IN ONE DAY
     Route: 048
  2. ALEVE [Suspect]
     Active Substance: NAPROXEN SODIUM
     Indication: FACIAL BONES FRACTURE
     Dosage: TAKE 1 CAPLET EVERY 8 TO 12 HOURS WHILE SYMPTOMS LAST, FOR THE
     Route: 048
     Dates: start: 20160623, end: 20160623

REACTIONS (2)
  - Haematochezia [None]
  - Product use issue [None]

NARRATIVE: CASE EVENT DATE: 20160623
